FAERS Safety Report 6227653-X (Version None)
Quarter: 2009Q2

REPORT INFORMATION
  Report Type: 
  Country: None (occurrence: None)
  Receive Date: 20090612
  Receipt Date: 20090605
  Transmission Date: 20091009
  Serious: Yes (Other)
  Sender: FDA-Public Use
  Company Number: PHHY2009FR17848

PATIENT
  Sex: Female
  Weight: 79 kg

DRUGS (2)
  1. EXFORGE [Suspect]
     Indication: HYPERTENSION
     Dosage: 160/5 MG DAILY
     Route: 048
     Dates: start: 20090304, end: 20090407
  2. DIAMICRON [Concomitant]
     Dosage: 2 DF/DAY

REACTIONS (3)
  - MACULAR OEDEMA [None]
  - OEDEMA PERIPHERAL [None]
  - PHOSPHENES [None]
